FAERS Safety Report 6326981-7 (Version None)
Quarter: 2009Q3

REPORT INFORMATION
  Report Type: 
  Country: None (occurrence: None)
  Receive Date: 20090825
  Receipt Date: 20090814
  Transmission Date: 20100115
  Serious: Yes (Other)
  Sender: FDA-Public Use
  Company Number: DE-JNJFOC-20080800109

PATIENT
  Age: 51 Year
  Sex: Male

DRUGS (3)
  1. REMICADE [Suspect]
     Indication: PSORIASIS
     Route: 042
  2. ENBREL [Suspect]
     Indication: PSORIASIS
  3. HUMIRA [Suspect]
     Indication: PSORIASIS
     Dosage: FOR 12 WEEKS
     Route: 058

REACTIONS (3)
  - DRUG INEFFECTIVE [None]
  - MALIGNANT MELANOMA [None]
  - PSORIASIS [None]
